FAERS Safety Report 12384441 (Version 1)
Quarter: 2016Q2

REPORT INFORMATION
  Report Type: Spontaneous
  Country: US (occurrence: None)
  Receive Date: 20160518
  Receipt Date: 20160518
  Transmission Date: 20160815
  Serious: Yes (Other)
  Sender: FDA-Public Use
  Company Number: None

PATIENT
  Sex: Female
  Weight: 47.17 kg

DRUGS (21)
  1. VITAMIN B [Concomitant]
     Active Substance: VITAMIN B
  2. FLEXERIL [Concomitant]
     Active Substance: CYCLOBENZAPRINE HYDROCHLORIDE
  3. VITAMIN C [Concomitant]
     Active Substance: ASCORBIC ACID
  4. MAGNESIUM [Concomitant]
     Active Substance: MAGNESIUM
  5. BIOTIN [Concomitant]
     Active Substance: BIOTIN
  6. BOSWELLIA [Concomitant]
  7. MONONESSA [Concomitant]
     Active Substance: ETHINYL ESTRADIOL\NORGESTIMATE
  8. REMICADE [Suspect]
     Active Substance: INFLIXIMAB
     Indication: CROHN^S DISEASE
     Dosage: INTO A VEIN
     Route: 042
  9. CLINDAMYCIN [Concomitant]
     Active Substance: CLINDAMYCIN\CLINDAMYCIN PHOSPHATE
  10. FLAXSEED [Concomitant]
     Active Substance: FLAX SEED
  11. MEDICAL MARIJUANA [Concomitant]
     Active Substance: CANNABIS SATIVA SUBSP. INDICA TOP
  12. WHITE WILLOW BARK [Concomitant]
  13. SOOLANTRA [Concomitant]
     Active Substance: IVERMECTIN
  14. VITAMIN D [Concomitant]
     Active Substance: CHOLECALCIFEROL
  15. FOLIC ACID. [Concomitant]
     Active Substance: FOLIC ACID
  16. PRIMROSE EVENING OIL [Concomitant]
  17. EPIDUO FORTE [Concomitant]
     Active Substance: ADAPALENE\BENZOYL PEROXIDE
  18. IMITREX [Concomitant]
     Active Substance: SUMATRIPTAN SUCCINATE
  19. IRON [Concomitant]
     Active Substance: IRON
  20. FISH OIL [Concomitant]
     Active Substance: FISH OIL
  21. GINGER ROOT [Concomitant]
     Active Substance: GINGER

REACTIONS (6)
  - Pyrexia [None]
  - Migraine [None]
  - Arthralgia [None]
  - Vascular rupture [None]
  - Myalgia [None]
  - Rosacea [None]
